FAERS Safety Report 23892591 (Version 1)
Quarter: 2024Q2

REPORT INFORMATION
  Report Type: Spontaneous
  Country: US (occurrence: None)
  Receive Date: 20240524
  Receipt Date: 20240524
  Transmission Date: 20240716
  Serious: No
  Sender: FDA-Public Use
  Company Number: US-ROCHE-3439606

PATIENT
  Sex: Female

DRUGS (1)
  1. OCREVUS [Suspect]
     Active Substance: OCRELIZUMAB
     Indication: Product used for unknown indication
     Route: 065

REACTIONS (7)
  - Cough [Unknown]
  - Throat irritation [Unknown]
  - Erythema [Unknown]
  - Arthralgia [Unknown]
  - Dysphonia [Unknown]
  - Lymphadenopathy [Unknown]
  - Headache [Unknown]
